FAERS Safety Report 9117960 (Version 1)
Quarter: 2013Q1

REPORT INFORMATION
  Report Type: Spontaneous
  Country: JP (occurrence: JP)
  Receive Date: 20130208
  Receipt Date: 20130208
  Transmission Date: 20140127
  Serious: Yes (Hospitalization)
  Sender: FDA-Public Use
  Company Number: JP-ASTRAZENECA-2012SE95566

PATIENT
  Age: 30167 Day
  Sex: Female
  Weight: 40 kg

DRUGS (4)
  1. NEXIUM [Suspect]
     Route: 048
     Dates: start: 20121001, end: 20121214
  2. BREDININ [Concomitant]
     Indication: RHEUMATOID ARTHRITIS
     Route: 048
     Dates: start: 20100902
  3. BAYASPIRIN [Concomitant]
     Indication: ARTERIOSCLEROSIS
     Route: 048
     Dates: start: 20060902, end: 20121214
  4. SALAGEN [Concomitant]
     Indication: SJOGREN^S SYNDROME
     Route: 048
     Dates: start: 20101002

REACTIONS (1)
  - Drug-induced liver injury [Recovered/Resolved]
